FAERS Safety Report 8271755-3 (Version None)
Quarter: 2012Q2

REPORT INFORMATION
  Report Type: 
  Country: None (occurrence: None)
  Receive Date: 20120410
  Receipt Date: 20120403
  Transmission Date: 20120825
  Serious: Yes (Other)
  Sender: FDA-Public Use
  Company Number: US-MERCK-1009USA05550

PATIENT
  Age: 28 Year
  Sex: Female
  Weight: 69 kg

DRUGS (1)
  1. MAXALT [Suspect]
     Indication: MIGRAINE
     Route: 048
     Dates: start: 20100918, end: 20100918

REACTIONS (2)
  - MATERNAL EXPOSURE DURING PREGNANCY [None]
  - ADVERSE EVENT [None]
